FAERS Safety Report 25293055 (Version 1)
Quarter: 2025Q2

REPORT INFORMATION
  Report Type: Spontaneous
  Country: US (occurrence: US)
  Receive Date: 20250510
  Receipt Date: 20250510
  Transmission Date: 20250716
  Serious: No
  Sender: SANOFI AVENTIS
  Company Number: US-SA-2025SA126994

PATIENT
  Age: 60 Year
  Sex: Male

DRUGS (14)
  1. DUPIXENT [Suspect]
     Active Substance: DUPILUMAB
     Indication: Nasal polyps
     Route: 058
     Dates: start: 20240802, end: 20250429
  2. VITAMIN C [Concomitant]
     Active Substance: ASCORBIC ACID
  3. IBUPROFEN [Concomitant]
     Active Substance: IBUPROFEN
  4. RANOLAZINE [Concomitant]
     Active Substance: RANOLAZINE
  5. IVERMECTIN [Concomitant]
     Active Substance: IVERMECTIN
  6. TYLENOL [Concomitant]
     Active Substance: ACETAMINOPHEN
  7. LORATADINE [Concomitant]
     Active Substance: LORATADINE
  8. SYMBICORT [Concomitant]
     Active Substance: BUDESONIDE\FORMOTEROL FUMARATE DIHYDRATE
  9. BIOTIN [Concomitant]
     Active Substance: BIOTIN
  10. TRIAMCINOLONE [Concomitant]
     Active Substance: TRIAMCINOLONE
  11. MUPIROCIN [Concomitant]
     Active Substance: MUPIROCIN
  12. ASPIRIN [Concomitant]
     Active Substance: ASPIRIN
  13. COLLAGEN [ASCORBIC ACID;COLLAGEN] [Concomitant]
  14. OREGANO LEAF OIL [Concomitant]
     Active Substance: OREGANO LEAF OIL

REACTIONS (1)
  - Serum sickness [Unknown]
